FAERS Safety Report 17893625 (Version 1)
Quarter: 2020Q2

REPORT INFORMATION
  Report Type: Spontaneous
  Country: ES (occurrence: ES)
  Receive Date: 20200615
  Receipt Date: 20200615
  Transmission Date: 20200714
  Serious: Yes (Disabling)
  Sender: FDA-Public Use
  Company Number: ES-CADILA HEALTHCARE LIMITED-ES-ZYDUS-036596

PATIENT

DRUGS (5)
  1. RHODIOLA [Concomitant]
     Active Substance: HERBALS
     Indication: ANXIETY
     Dosage: ()
     Dates: start: 20190304, end: 20190331
  2. ESCITALOPRAM [Suspect]
     Active Substance: ESCITALOPRAM OXALATE
     Indication: ANXIETY
     Dates: start: 20190411
  3. PANTOPRAZOL [Concomitant]
     Active Substance: PANTOPRAZOLE SODIUM
     Indication: ABDOMINAL DISCOMFORT
     Dosage: 1 A DAY ()
     Dates: start: 20190318
  4. PANTOPRAZOL 20,MG [Concomitant]
     Indication: ABDOMINAL DISCOMFORT
     Dosage: 1 AL D A ()
     Dates: start: 20190318, end: 20190407
  5. ALPRAZOLAM. [Suspect]
     Active Substance: ALPRAZOLAM
     Indication: ANXIETY
     Dosage: 0.25 IN THE MORNING, AND SOMETIMES IN THE EVENING ()
     Dates: start: 20190409

REACTIONS (5)
  - Feeling abnormal [Not Recovered/Not Resolved]
  - Disturbance in attention [Not Recovered/Not Resolved]
  - Palpitations [Not Recovered/Not Resolved]
  - Derealisation [Not Recovered/Not Resolved]
  - Somnolence [Not Recovered/Not Resolved]

NARRATIVE: CASE EVENT DATE: 20190411
